FAERS Safety Report 7196950-6 (Version None)
Quarter: 2010Q4

REPORT INFORMATION
  Report Type: 
  Country: None (occurrence: None)
  Receive Date: 20101224
  Receipt Date: 20101215
  Transmission Date: 20110411
  Serious: Yes (Hospitalization)
  Sender: FDA-Public Use
  Company Number: US-BIOGENIDEC-2010BI044517

PATIENT
  Age: 57 Year
  Sex: Female

DRUGS (2)
  1. TYSABRI [Suspect]
     Indication: MULTIPLE SCLEROSIS
     Route: 042
     Dates: start: 20090608
  2. TYSABRI [Suspect]
     Route: 042
     Dates: start: 20070626, end: 20070801

REACTIONS (2)
  - MEMORY IMPAIRMENT [None]
  - PSYCHOTIC DISORDER [None]
